FAERS Safety Report 9458782 (Version 2)
Quarter: 2013Q3

REPORT INFORMATION
  Report Type: Spontaneous
  Country: CN (occurrence: CN)
  Receive Date: 20130814
  Receipt Date: 20130924
  Transmission Date: 20140515
  Serious: Yes (Hospitalization)
  Sender: FDA-Public Use
  Company Number: CN-BRISTOL-MYERS SQUIBB COMPANY-19161520

PATIENT
  Age: 62 Year
  Sex: Female

DRUGS (2)
  1. TAXOL [Suspect]
     Indication: OVARIAN CANCER STAGE III
     Dosage: CYCLE 3, 175MG/M2
     Dates: start: 2006, end: 20130729
  2. PARAPLATIN [Suspect]
     Indication: OVARIAN CANCER STAGE III
     Dosage: 3CYCLE, AUC 5
     Dates: start: 2006, end: 20130729

REACTIONS (2)
  - Anaphylactic shock [Recovered/Resolved]
  - Delirium [Recovering/Resolving]
